FAERS Safety Report 19074446 (Version 1)
Quarter: 2021Q1

REPORT INFORMATION
  Report Type: Spontaneous
  Country: US (occurrence: US)
  Receive Date: 20210330
  Receipt Date: 20210330
  Transmission Date: 20210420
  Serious: No
  Sender: FDA-Public Use
  Company Number: US-TEVA-2021-US-1895101

PATIENT
  Age: 75 Year
  Sex: Female

DRUGS (2)
  1. LETROZOLE TEVA [Suspect]
     Active Substance: LETROZOLE
     Route: 065
  2. LETROZOLE TEVA [Suspect]
     Active Substance: LETROZOLE
     Indication: UTERINE CANCER
     Route: 065

REACTIONS (5)
  - Insomnia [Not Recovered/Not Resolved]
  - Oral mucosal blistering [Not Recovered/Not Resolved]
  - Alopecia [Not Recovered/Not Resolved]
  - Eating disorder [Not Recovered/Not Resolved]
  - Oral pain [Unknown]
